FAERS Safety Report 15635642 (Version 1)
Quarter: 2018Q4

REPORT INFORMATION
  Report Type: Spontaneous
  Country: US (occurrence: US)
  Receive Date: 20181120
  Receipt Date: 20181120
  Transmission Date: 20190205
  Serious: No
  Sender: FDA-Public Use
  Company Number: US-ROCHE-2214505

PATIENT
  Age: 31 Year
  Sex: Male
  Weight: 88.53 kg

DRUGS (7)
  1. GABAPENTIN. [Concomitant]
     Active Substance: GABAPENTIN
     Indication: MUSCLE SPASMS
     Dosage: ONGOING: YES
     Route: 065
  2. PROPRANOLOL [Concomitant]
     Active Substance: PROPRANOLOL HYDROCHLORIDE
     Indication: HEADACHE
     Dosage: ONGOING: YES
     Route: 065
  3. BACLOFEN. [Concomitant]
     Active Substance: BACLOFEN
     Indication: TENSION
  4. KLONOPIN [Suspect]
     Active Substance: CLONAZEPAM
     Indication: NYSTAGMUS
     Dosage: ONGOING: YES
     Route: 065
     Dates: start: 2016
  5. OCREVUS [Suspect]
     Active Substance: OCRELIZUMAB
     Indication: MULTIPLE SCLEROSIS
     Dosage: ONGOING: YES
     Route: 065
     Dates: start: 201704
  6. OCREVUS [Suspect]
     Active Substance: OCRELIZUMAB
     Route: 065
     Dates: start: 20181105
  7. BACLOFEN. [Concomitant]
     Active Substance: BACLOFEN
     Indication: MYALGIA
     Dosage: ONGOING YES
     Route: 065

REACTIONS (8)
  - Flushing [Recovered/Resolved]
  - Lower respiratory tract infection [Recovering/Resolving]
  - Intentional product use issue [Unknown]
  - Off label use [Unknown]
  - Lower respiratory tract congestion [Recovering/Resolving]
  - Sinus congestion [Recovering/Resolving]
  - Increased upper airway secretion [Recovering/Resolving]
  - Productive cough [Not Recovered/Not Resolved]

NARRATIVE: CASE EVENT DATE: 201810
